FAERS Safety Report 9789694 (Version 2)
Quarter: 2013Q4

REPORT INFORMATION
  Report Type: Spontaneous
  Country: CA (occurrence: None)
  Receive Date: 20131227
  Receipt Date: 20131231
  Transmission Date: 20140711
  Serious: Yes (Hospitalization)
  Sender: FDA-Public Use
  Company Number: SYM-2013-14048

PATIENT
  Age: 29 Year
  Sex: Female

DRUGS (12)
  1. BUPROPION HYDROCHLORIDE [Suspect]
     Indication: TOBACCO USER
     Route: 042
  2. BUPROPION HYDROCHLORIDE [Suspect]
     Indication: DRUG ABUSE
     Route: 042
  3. PURIFIED WATER (WATER PURIFIED) (WATER PURIFIED) [Concomitant]
  4. RITONAVIR (RITONAVIR) [Concomitant]
  5. ATAZANAVIR (ATAZANAVIR) (ATAZANZVIR) [Concomitant]
  6. EMTRICITABINE (EMTRICITABINE) (EMTRICITABINE) [Concomitant]
  7. TENOFOVIR (TENOFOVIR) (TENOFOVIR) [Concomitant]
  8. OLANZAPINE (OLANZAPINE) (OLANZAPINE) [Concomitant]
  9. LITHIUM SALT (LITHIUM) (LITHIUM) [Concomitant]
  10. VENLAFAXINE HYDROCHLORIDE (VENLAFAXINE HYDROCHLORIDE) (VENLAFAXINE HYDROCHLORIDE) [Concomitant]
  11. DIVALPROEX (VALPROATE SEMISODIUM) (VALPROATE SEMISODIUM) [Concomitant]
  12. BUPRENORPHINE/NALOXONE (BUPRENORPHINE W/NALOXONE (NALOXONE, BUPRENORPHINE) [Concomitant]

REACTIONS (8)
  - Drug dependence [None]
  - Incorrect route of drug administration [None]
  - Drug abuse [None]
  - Irritability [None]
  - Affect lability [None]
  - Depressed mood [None]
  - Drug withdrawal syndrome [None]
  - Incorrect dose administered [None]
